FAERS Safety Report 22599574 (Version 1)
Quarter: 2023Q2

REPORT INFORMATION
  Report Type: Spontaneous
  Country: US (occurrence: US)
  Receive Date: 20230614
  Receipt Date: 20230614
  Transmission Date: 20230722
  Serious: Yes (Other)
  Sender: FDA-Public Use
  Company Number: US-BAUSCHBL-2023BNL004976

PATIENT
  Sex: Female

DRUGS (1)
  1. MURO 128 [Suspect]
     Active Substance: SODIUM CHLORIDE
     Indication: Fuchs^ syndrome
     Route: 047
     Dates: start: 202305, end: 2023

REACTIONS (6)
  - Eye haemorrhage [Recovered/Resolved]
  - Instillation site pain [Recovered/Resolved]
  - Instillation site pruritus [Recovered/Resolved]
  - Instillation site discharge [Recovered/Resolved]
  - Instillation site dryness [Recovered/Resolved]
  - Eyelid margin crusting [Recovered/Resolved]

NARRATIVE: CASE EVENT DATE: 20230501
